FAERS Safety Report 23326555 (Version 1)
Quarter: 2023Q4

REPORT INFORMATION
  Report Type: Report from Study
  Country: KR (occurrence: KR)
  Receive Date: 20231221
  Receipt Date: 20231221
  Transmission Date: 20240110
  Serious: Yes (Hospitalization, Other)
  Sender: FDA-Public Use
  Company Number: KR-BR-2023-0195

PATIENT
  Age: 58 Year
  Sex: Female
  Weight: 49.7 kg

DRUGS (16)
  1. LURBINECTEDIN [Suspect]
     Active Substance: LURBINECTEDIN
     Indication: Small cell lung cancer
     Dosage: 3.2 MILLIGRAM/SQ. METER, Q3W
     Route: 042
     Dates: start: 20230919, end: 20230919
  2. DIETARY SUPPLEMENT\HERBALS\MILK THISTLE [Concomitant]
     Active Substance: MILK THISTLE
     Dosage: 140 MILLIGRAM, TID
     Route: 048
     Dates: start: 20230914, end: 20230929
  3. URSODIOL [Concomitant]
     Active Substance: URSODIOL
     Dosage: 100 MILLIGRAM, Q8H
     Route: 048
     Dates: start: 20230914, end: 20230929
  4. FAMOTIDINE [Concomitant]
     Active Substance: FAMOTIDINE
     Dosage: 20 MILLIGRAM, QD
     Route: 042
     Dates: start: 20230919, end: 20230919
  5. ONSERAN [Concomitant]
     Dosage: 8 MILLIGRAM, QD (8MG/4ML)
     Route: 042
     Dates: start: 20230919, end: 20230919
  6. DEXAMETHASONE [Concomitant]
     Active Substance: DEXAMETHASONE
     Dosage: 8 MILLIGRAM, QD
     Route: 042
     Dates: start: 20230919, end: 20230919
  7. MORPHINE SULFATE [Concomitant]
     Active Substance: MORPHINE SULFATE
     Dosage: 30 MILLIGRAM, QD
     Route: 042
     Dates: start: 20230919
  8. FENTADUR [Concomitant]
     Indication: Pain prophylaxis
     Dosage: 5.5 MILLIGRAM, QD (50MCG/H)
     Route: 062
     Dates: start: 20230919
  9. KYONGBO CEFTRIAXONE [Concomitant]
     Dosage: 2 GRAM, QD
     Route: 042
     Dates: start: 20230919, end: 20230922
  10. OXYCODONE HYDROCHLORIDE [Concomitant]
     Active Substance: OXYCODONE HYDROCHLORIDE
     Indication: Pain prophylaxis
     Dosage: 10 MILLIGRAM
     Route: 048
     Dates: start: 20230920
  11. HEPATAMINE [AMINO ACIDS NOS;OXYCODONE;OXYCODONE TEREPHTHALATE;PARACETA [Concomitant]
     Dosage: 500 MILLILITER, QD
     Route: 042
     Dates: start: 20230921, end: 20230922
  12. NORPIN [NOREPINEPHRINE] [Concomitant]
     Dosage: 20 MILLILITER, QD
     Route: 042
     Dates: start: 20230921, end: 20230926
  13. TRAMADOL HYDROCHLORIDE [Concomitant]
     Active Substance: TRAMADOL HYDROCHLORIDE
     Indication: Pain prophylaxis
     Dosage: 100 MILLIGRAM
     Route: 042
     Dates: start: 20230921
  14. ORNITHINE ASPARTATE [Concomitant]
     Active Substance: ORNITHINE ASPARTATE
     Dosage: 2000 MILLIGRAM, QD
     Route: 042
     Dates: start: 20230921, end: 20230924
  15. PORTALAC [LACTULOSE] [Concomitant]
     Indication: Constipation prophylaxis
     Dosage: 20 GRAM, BID
     Route: 048
     Dates: start: 20230921
  16. HARMONILAN [Concomitant]
     Dosage: 200 MILLILITER, BID
     Route: 048
     Dates: start: 20230923

REACTIONS (2)
  - Febrile neutropenia [Recovered/Resolved]
  - Thrombocytopenia [Recovered/Resolved]

NARRATIVE: CASE EVENT DATE: 20230921
